FAERS Safety Report 13803429 (Version 1)
Quarter: 2017Q3

REPORT INFORMATION
  Report Type: Spontaneous
  Country: GB (occurrence: US)
  Receive Date: 20170728
  Receipt Date: 20170728
  Transmission Date: 20171127
  Serious: Yes (Other)
  Sender: FDA-Public Use
  Company Number: None

PATIENT
  Age: 46 Year
  Sex: Female
  Weight: 75 kg

DRUGS (6)
  1. REZOLSTA [Concomitant]
     Active Substance: COBICISTAT\DARUNAVIR ETHANOLATE
  2. IRION [Concomitant]
  3. ESMYA [Concomitant]
     Active Substance: ULIPRISTAL ACETATE
  4. RITONAVIR. [Suspect]
     Active Substance: RITONAVIR
     Indication: HIV INFECTION
     Dosage: ?          QUANTITY:3 TABLET(S);?
     Route: 048
     Dates: start: 20160318
  5. TRUVADA [Suspect]
     Active Substance: EMTRICITABINE\TENOFOVIR DISOPROXIL FUMARATE
     Indication: HIV INFECTION
     Dosage: ?          QUANTITY:3 TABLET(S);?
     Route: 048
  6. ANTIHISTAMINNE [Concomitant]

REACTIONS (4)
  - Musculoskeletal pain [None]
  - Skin disorder [None]
  - Back pain [None]
  - Haemorrhage [None]

NARRATIVE: CASE EVENT DATE: 20160318
